FAERS Safety Report 7741356-1 (Version None)
Quarter: 2011Q3

REPORT INFORMATION
  Report Type: 
  Country: None (occurrence: None)
  Receive Date: 20110909
  Receipt Date: 20110907
  Transmission Date: 20111222
  Serious: No
  Sender: FDA-Public Use
  Company Number: US-PFIZER INC-2011210104

PATIENT
  Sex: Male
  Weight: 92.063 kg

DRUGS (3)
  1. ZOLOFT [Suspect]
     Indication: DEPRESSION
  2. CLONAZEPAM [Concomitant]
     Indication: ANXIETY
     Dosage: UNK
     Dates: start: 19990601
  3. ZOLOFT [Suspect]
     Indication: ANXIETY
     Dosage: UNK
     Dates: start: 19990201, end: 19990301

REACTIONS (1)
  - BLOOD CHOLESTEROL INCREASED [None]
